FAERS Safety Report 9643979 (Version 1)
Quarter: 2013Q4

REPORT INFORMATION
  Report Type: Spontaneous
  Country: FR (occurrence: None)
  Receive Date: 20131023
  Receipt Date: 20131023
  Transmission Date: 20140711
  Serious: Yes (Hospitalization)
  Sender: FDA-Public Use
  Company Number: ENTC2013-0389

PATIENT
  Age: 75 Year
  Sex: Female

DRUGS (4)
  1. LEVODOPA-CARBIDOPA-ENTACAPONE [Suspect]
     Indication: PARKINSON^S DISEASE
  2. AMANTADINE HYDROCHLORIDE [Suspect]
     Indication: PARKINSON^S DISEASE
  3. RASAGILINE [Suspect]
     Indication: PARKINSON^S DISEASE
  4. SERTRALINE (SERTRALINE) [Suspect]
     Indication: MAJOR DEPRESSION

REACTIONS (6)
  - Drug interaction [None]
  - Serotonin syndrome [None]
  - Rhabdomyolysis [None]
  - Renal failure [None]
  - Delusion [None]
  - Agitation [None]
